FAERS Safety Report 18558499 (Version 1)
Quarter: 2020Q4

REPORT INFORMATION
  Report Type: Spontaneous
  Country: US (occurrence: US)
  Receive Date: 20201130
  Receipt Date: 20201130
  Transmission Date: 20210114
  Serious: No
  Sender: FDA-Public Use
  Company Number: US-BAUSCH-BL-2020-033545

PATIENT
  Sex: Female

DRUGS (2)
  1. DILTIAZEM HCL EXTENDED-RELEASE CAPSULES [Suspect]
     Active Substance: DILTIAZEM HYDROCHLORIDE
     Indication: PRODUCT USED FOR UNKNOWN INDICATION
     Dosage: 2 DAYS AGO PRIOR TO THE REPORT
     Route: 065
     Dates: start: 20201109
  2. DILTIAZEM HCL TABLETS [Suspect]
     Active Substance: DILTIAZEM HYDROCHLORIDE
     Indication: PRODUCT USED FOR UNKNOWN INDICATION
     Dosage: 2 DAYS AGO PRIOR TO THE REPORT
     Route: 065
     Dates: start: 20201109

REACTIONS (2)
  - Paraesthesia [Not Recovered/Not Resolved]
  - Burning sensation [Not Recovered/Not Resolved]

NARRATIVE: CASE EVENT DATE: 202011
